FAERS Safety Report 10649674 (Version 2)
Quarter: 2020Q3

REPORT INFORMATION
  Report Type: Report from Study
  Country: DK (occurrence: DK)
  Receive Date: 20141212
  Receipt Date: 20141218
  Transmission Date: 20201105
  Serious: Yes (Life-Threatening, Hospitalization)
  Sender: FDA-Public Use
  Company Number: DK-ACTAVIS-2014-26390

PATIENT
  Age: 78 Year
  Sex: Male
  Weight: 69 kg

DRUGS (8)
  1. PARACETAMOL [Concomitant]
     Active Substance: ACETAMINOPHEN
     Indication: CHEST PAIN
     Dosage: UNK
     Route: 065
     Dates: start: 20130130
  2. CAELYX [Suspect]
     Active Substance: DOXORUBICIN HYDROCHLORIDE
     Indication: MESOTHELIOMA MALIGNANT
     Dosage: UNK
     Route: 065
     Dates: start: 20141028
  3. ACETYLSALICYLIC ACID [Concomitant]
     Active Substance: ASPIRIN
     Indication: PROPHYLAXIS
     Dosage: UNK
     Route: 065
     Dates: start: 20121211
  4. PERSANTIN [Concomitant]
     Active Substance: DIPYRIDAMOLE
     Indication: PROPHYLAXIS
     Dosage: UNK
     Route: 065
     Dates: start: 20121211
  5. CARBOPLATIN (UNKNOWN) [Suspect]
     Active Substance: CARBOPLATIN
     Indication: MESOTHELIOMA MALIGNANT
     Dosage: UNK
     Route: 065
     Dates: start: 20141028
  6. GEMCITABINE. [Suspect]
     Active Substance: GEMCITABINE
     Indication: MESOTHELIOMA MALIGNANT
     Dosage: UNK
     Route: 065
     Dates: start: 20141028
  7. TREMELIMUMAB. [Suspect]
     Active Substance: TREMELIMUMAB
     Indication: MESOTHELIOMA MALIGNANT
     Dosage: UNK, CYCLICAL
     Route: 042
     Dates: start: 20140611, end: 20140904
  8. FLUCONAZOLE. [Concomitant]
     Active Substance: FLUCONAZOLE
     Indication: MUCOSAL INFLAMMATION
     Dosage: UNK
     Route: 065
     Dates: start: 20141111

REACTIONS (4)
  - White blood cell count decreased [Not Recovered/Not Resolved]
  - Pyrexia [Recovered/Resolved]
  - Platelet count decreased [Recovered/Resolved]
  - Neutropenia [Recovered/Resolved]

NARRATIVE: CASE EVENT DATE: 20141111
